FAERS Safety Report 5581623-3 (Version None)
Quarter: 2008Q1

REPORT INFORMATION
  Report Type: 
  Country: None (occurrence: None)
  Receive Date: 20080102
  Receipt Date: 20080102
  Transmission Date: 20080703
  Serious: Yes (Hospitalization)
  Sender: FDA-Public Use
  Company Number: None

PATIENT
  Age: 84 Year
  Sex: Male

DRUGS (2)
  1. CIPROFLOXACIN [Suspect]
     Indication: URINARY TRACT INFECTION
     Dosage: 500MG BID PO
     Route: 048
     Dates: start: 20071020, end: 20071103
  2. NITROFURANTOIN [Suspect]
     Indication: URINARY TRACT INFECTION
     Dosage: 100MG BID PO
     Route: 048
     Dates: start: 20071115, end: 20071117

REACTIONS (1)
  - CLOSTRIDIUM DIFFICILE COLITIS [None]
